FAERS Safety Report 9129883 (Version 1)
Quarter: 2013Q1

REPORT INFORMATION
  Report Type: Spontaneous
  Country: CA (occurrence: CA)
  Receive Date: 20130125
  Receipt Date: 20130125
  Transmission Date: 20140127
  Serious: Yes (Death)
  Sender: FDA-Public Use
  Company Number: CA-B.I. PHARMACEUTICALS,INC./RIDGEFIELD-2013-CN-00105CN

PATIENT
  Age: 74 Year
  Sex: Male
  Weight: 81.64 kg

DRUGS (5)
  1. PRADAX [Suspect]
     Dosage: 150 MG
     Route: 048
  2. GABAPENTIN [Concomitant]
  3. METOPROLOL [Concomitant]
  4. RAMIPRIL [Concomitant]
  5. TAMSULOSIN [Concomitant]

REACTIONS (2)
  - Cerebral haemorrhage [Fatal]
  - Head injury [Fatal]
